FAERS Safety Report 4312517-9 (Version None)
Quarter: 2004Q1

REPORT INFORMATION
  Report Type: 
  Country: None (occurrence: None)
  Receive Date: 20040303
  Receipt Date: 20040220
  Transmission Date: 20041129
  Serious: Yes (Hospitalization)
  Sender: FDA-Public Use
  Company Number: 04P-013-0251154-00

PATIENT
  Age: 32 Year
  Sex: Male
  Weight: 51 kg

DRUGS (1)
  1. KALETRA [Suspect]
     Indication: HIV INFECTION
     Dosage: 3 CAPSULE, 2 IN 1 D, PER ORAL
     Route: 048
     Dates: start: 20031114

REACTIONS (4)
  - CELLULITIS STAPHYLOCOCCAL [None]
  - CHILLS [None]
  - EPISTAXIS [None]
  - FEBRILE NEUTROPENIA [None]
